FAERS Safety Report 4955088-6 (Version None)
Quarter: 2006Q1

REPORT INFORMATION
  Report Type: 
  Country: None (occurrence: None)
  Receive Date: 20060322
  Receipt Date: 20060228
  Transmission Date: 20060701
  Serious: Yes (Hospitalization)
  Sender: FDA-Public Use
  Company Number: US200603000168

PATIENT
  Sex: Female

DRUGS (4)
  1. HUMALOG [Suspect]
     Indication: DIABETES MELLITUS
     Dosage: 40 U. 3/D
     Dates: start: 20010101
  2. LANTUS [Concomitant]
  3. Q10 (UBIDECARENONE0 [Concomitant]
  4. FOLIC ACID [Concomitant]

REACTIONS (28)
  - ALBUMIN URINE PRESENT [None]
  - ALOPECIA [None]
  - BACK PAIN [None]
  - BLOOD GLUCOSE INCREASED [None]
  - BLOOD IMMUNOGLOBULIN G INCREASED [None]
  - BLOOD PRESSURE INCREASED [None]
  - C-REACTIVE PROTEIN INCREASED [None]
  - DRUG INEFFECTIVE [None]
  - HERPES ZOSTER [None]
  - INFLAMMATION [None]
  - INJECTION SITE EXTRAVASATION [None]
  - INJECTION SITE HAEMORRHAGE [None]
  - INJECTION SITE REACTION [None]
  - JOINT RANGE OF MOTION DECREASED [None]
  - LYMPHOCYTE COUNT DECREASED [None]
  - MOBILITY DECREASED [None]
  - OEDEMA PERIPHERAL [None]
  - PAIN [None]
  - PAIN IN EXTREMITY [None]
  - PHARMACEUTICAL PRODUCT COMPLAINT [None]
  - PROTEINURIA [None]
  - PYREXIA [None]
  - RASH [None]
  - RHEUMATOID ARTHRITIS [None]
  - RHEUMATOID FACTOR INCREASED [None]
  - RIB FRACTURE [None]
  - SOMNOLENCE [None]
  - WOUND SECRETION [None]
